FAERS Safety Report 6153609-1 (Version None)
Quarter: 2009Q2

REPORT INFORMATION
  Report Type: 
  Country: None (occurrence: None)
  Receive Date: 20090413
  Receipt Date: 20090401
  Transmission Date: 20091009
  Serious: Yes (Other)
  Sender: FDA-Public Use
  Company Number: JP-PFIZER INC-2009188968

PATIENT

DRUGS (2)
  1. ZOLOFT [Suspect]
     Dosage: 50 MG, UNK
     Route: 048
  2. LUVOX [Concomitant]
     Route: 048

REACTIONS (7)
  - BLOOD PRESSURE DECREASED [None]
  - COLD SWEAT [None]
  - DIZZINESS [None]
  - FALL [None]
  - FEELING COLD [None]
  - HYPERHIDROSIS [None]
  - LOSS OF CONSCIOUSNESS [None]
